FAERS Safety Report 7229458-X (Version None)
Quarter: 2011Q1

REPORT INFORMATION
  Report Type: 
  Country: None (occurrence: None)
  Receive Date: 20110117
  Receipt Date: 20110108
  Transmission Date: 20110831
  Serious: Yes (Life-Threatening, Hospitalization)
  Sender: FDA-Public Use
  Company Number: Z0006055A

PATIENT
  Age: 79 Year
  Sex: Male
  Weight: 91.6 kg

DRUGS (2)
  1. RANIBIZUMAB [Suspect]
     Route: 031
     Dates: start: 20100805
  2. PAZOPANIB [Suspect]
     Dosage: 5MGML THREE TIMES PER DAY
     Route: 047
     Dates: start: 20100819

REACTIONS (1)
  - AORTIC ANEURYSM [None]
